FAERS Safety Report 5802894-1 (Version None)
Quarter: 2008Q3

REPORT INFORMATION
  Report Type: 
  Country: None (occurrence: None)
  Receive Date: 20080708
  Receipt Date: 20080627
  Transmission Date: 20090109
  Serious: Yes (Life-Threatening)
  Sender: FDA-Public Use
  Company Number: JP-JNJFOC-20080304059

PATIENT
  Sex: Female
  Weight: 70 kg

DRUGS (34)
  1. REMICADE [Suspect]
     Route: 042
  2. REMICADE [Suspect]
     Route: 042
  3. REMICADE [Suspect]
     Route: 042
  4. REMICADE [Suspect]
     Route: 042
  5. REMICADE [Suspect]
     Route: 042
  6. REMICADE [Suspect]
     Route: 042
  7. REMICADE [Suspect]
     Route: 042
  8. REMICADE [Suspect]
     Route: 042
  9. REMICADE [Suspect]
     Route: 042
  10. REMICADE [Suspect]
     Route: 042
  11. REMICADE [Suspect]
     Route: 042
  12. REMICADE [Suspect]
     Route: 042
  13. REMICADE [Suspect]
     Route: 042
  14. REMICADE [Suspect]
     Route: 042
  15. REMICADE [Suspect]
     Route: 042
  16. REMICADE [Suspect]
     Route: 042
  17. REMICADE [Suspect]
     Route: 042
  18. REMICADE [Suspect]
     Route: 042
  19. REMICADE [Suspect]
     Route: 042
  20. REMICADE [Suspect]
     Indication: RHEUMATOID ARTHRITIS
     Route: 042
  21. FOLIAMIN [Concomitant]
     Route: 048
  22. METHOTREXATE [Concomitant]
     Route: 048
  23. METHOTREXATE [Concomitant]
     Route: 048
  24. METHOTREXATE [Concomitant]
     Route: 048
  25. METHOTREXATE [Concomitant]
     Route: 048
  26. METHOTREXATE [Concomitant]
     Indication: RHEUMATOID ARTHRITIS
     Route: 048
  27. LOXONIN [Concomitant]
     Indication: RHEUMATOID ARTHRITIS
     Route: 048
  28. ANTIHISTAMINES [Concomitant]
     Indication: PREMEDICATION
  29. PREDNISOLONE [Concomitant]
     Route: 048
  30. PREDNISOLONE [Concomitant]
     Route: 048
  31. PREDNISOLONE [Concomitant]
     Route: 048
  32. BONALON [Concomitant]
     Route: 048
  33. INTEBAN [Concomitant]
     Indication: RHEUMATOID ARTHRITIS
  34. MUCOSTA [Concomitant]
     Route: 048

REACTIONS (1)
  - BREAST CANCER [None]
